FAERS Safety Report 9624410 (Version 2)
Quarter: 2013Q4

REPORT INFORMATION
  Report Type: Spontaneous
  Country: FR (occurrence: FR)
  Receive Date: 20131015
  Receipt Date: 20131104
  Transmission Date: 20140711
  Serious: Yes (Congenital Anomaly, Other)
  Sender: FDA-Public Use
  Company Number: FR-GLAXOSMITHKLINE-B0929368A

PATIENT
  Sex: Male

DRUGS (2)
  1. LAMICTAL [Suspect]
     Indication: EPILEPSY
     Dosage: 200MG TWICE PER DAY
     Route: 064
     Dates: start: 201202
  2. KEPPRA [Concomitant]
     Indication: EPILEPSY
     Dosage: 250MG TWICE PER DAY
     Route: 064

REACTIONS (3)
  - Aorta hypoplasia [Recovered/Resolved]
  - Bicuspid aortic valve [Unknown]
  - Foetal exposure during pregnancy [Unknown]
